FAERS Safety Report 9450843 (Version 6)
Quarter: 2014Q2

REPORT INFORMATION
  Report Type: Spontaneous
  Country: US (occurrence: US)
  Receive Date: 20130809
  Receipt Date: 20140506
  Transmission Date: 20141212
  Serious: Yes (Hospitalization, Disabling, Other)
  Sender: FDA-Public Use
  Company Number: US-009507513-1308USA003141

PATIENT
  Sex: Female
  Weight: 107.94 kg

DRUGS (5)
  1. FOSAMAX [Suspect]
     Indication: OSTEOPOROSIS
     Dosage: 70 MG, QW
     Route: 048
     Dates: start: 2000
  2. FOSAMAX [Suspect]
     Indication: OSTEOPENIA
  3. ALENDRONATE SODIUM [Suspect]
     Indication: OSTEOPOROSIS
     Dosage: 70 MG, QW
     Route: 048
     Dates: start: 200802, end: 201212
  4. VITAMINS (UNSPECIFIED) [Concomitant]
     Dosage: 1 DF, QD
     Dates: start: 1996
  5. CALCIUM (UNSPECIFIED) (+) VITAMIN D (UNSPECIFIED) [Concomitant]
     Dosage: 1200 MG, QD
     Dates: start: 1996

REACTIONS (25)
  - Femur fracture [Recovering/Resolving]
  - Open reduction of fracture [Unknown]
  - Caesarean section [Unknown]
  - Rotator cuff repair [Unknown]
  - Low turnover osteopathy [Not Recovered/Not Resolved]
  - Osteoporosis [Not Recovered/Not Resolved]
  - Stress fracture [Not Recovered/Not Resolved]
  - Femur fracture [Not Recovered/Not Resolved]
  - Depression [Not Recovered/Not Resolved]
  - Anxiety [Not Recovered/Not Resolved]
  - Type 2 diabetes mellitus [Unknown]
  - Obesity [Unknown]
  - Hyperlipidaemia [Unknown]
  - Hypertension [Unknown]
  - Fall [Unknown]
  - Adenotonsillectomy [Unknown]
  - Appendicectomy [Unknown]
  - Mastoidectomy [Unknown]
  - Sleep apnoea syndrome [Unknown]
  - Sleep disorder [Unknown]
  - Contusion [Unknown]
  - Glucose tolerance impaired [Unknown]
  - Vomiting [Unknown]
  - Alopecia [Unknown]
  - Constipation [Unknown]
